FAERS Safety Report 9149903 (Version 2)
Quarter: 2013Q1

REPORT INFORMATION
  Report Type: Spontaneous
  Country: JP (occurrence: JP)
  Receive Date: 20130308
  Receipt Date: 20130328
  Transmission Date: 20140127
  Serious: Yes (Hospitalization)
  Sender: FDA-Public Use
  Company Number: JP-PFIZER INC-2013079686

PATIENT
  Age: 78 Year
  Sex: Female

DRUGS (1)
  1. LYRICA [Suspect]
     Dosage: 50 MG, DAILY
     Route: 048

REACTIONS (3)
  - Pneumonia [Unknown]
  - Withdrawal syndrome [Unknown]
  - Musculoskeletal stiffness [Recovering/Resolving]
